FAERS Safety Report 13549014 (Version 1)
Quarter: 2017Q2

REPORT INFORMATION
  Report Type: Spontaneous
  Country: US (occurrence: US)
  Receive Date: 20170516
  Receipt Date: 20170516
  Transmission Date: 20170830
  Serious: No
  Sender: FDA-Public Use
  Company Number: US-PFIZER INC-2017211359

PATIENT
  Sex: Male

DRUGS (1)
  1. XELJANZ XR [Suspect]
     Active Substance: TOFACITINIB CITRATE
     Dosage: 11 MG, DAILY (DAILY FOR 2 WEEKS)

REACTIONS (6)
  - Arthralgia [Recovering/Resolving]
  - Musculoskeletal stiffness [Unknown]
  - Skin disorder [Unknown]
  - Joint contracture [Unknown]
  - Pain [Recovering/Resolving]
  - Synovitis [Unknown]
